FAERS Safety Report 16711724 (Version 3)
Quarter: 2020Q3

REPORT INFORMATION
  Report Type: Spontaneous
  Country: US (occurrence: US)
  Receive Date: 20190816
  Receipt Date: 20200910
  Transmission Date: 20201102
  Serious: No
  Sender: FDA-Public Use
  Company Number: US-SA-2019SA225976

PATIENT

DRUGS (8)
  1. ALLEGRA [Concomitant]
     Active Substance: FEXOFENADINE HYDROCHLORIDE
  2. NYSTATIN. [Concomitant]
     Active Substance: NYSTATIN
     Dosage: UNK
  3. BETAMETHASONE DIPROPIONATE. [Concomitant]
     Active Substance: BETAMETHASONE DIPROPIONATE
     Dosage: UNK
  4. KETOCONAZOLE. [Concomitant]
     Active Substance: KETOCONAZOLE
  5. TACROLIMUS. [Concomitant]
     Active Substance: TACROLIMUS
  6. FLUCONAZOLE. [Concomitant]
     Active Substance: FLUCONAZOLE
  7. DUPIXENT [Suspect]
     Active Substance: DUPILUMAB
     Indication: DERMATITIS ATOPIC
     Dosage: 300 MG, QOW
     Route: 058
     Dates: start: 201906
  8. HYDROXYZINE HCL [Concomitant]
     Active Substance: HYDROXYZINE HYDROCHLORIDE

REACTIONS (4)
  - Dysphagia [Unknown]
  - Injection site urticaria [Unknown]
  - Urticaria [Unknown]
  - Pruritus [Unknown]

NARRATIVE: CASE EVENT DATE: 201906
